FAERS Safety Report 8091105-5 (Version None)
Quarter: 2012Q1

REPORT INFORMATION
  Report Type: 
  Country: None (occurrence: None)
  Receive Date: 20120129
  Receipt Date: 20111016
  Transmission Date: 20120608
  Serious: No
  Sender: FDA-Public Use
  Company Number: US-ABBOTT-11P-163-0867067-00

PATIENT
  Age: 79 Year
  Sex: Female

DRUGS (4)
  1. UNKNOWN MEDICATION [Concomitant]
     Indication: PRODUCT USED FOR UNKNOWN INDICATION
  2. HUMIRA [Suspect]
     Dosage: RESUMED THERAPY
     Dates: end: 20110601
  3. HUMIRA [Suspect]
     Indication: PSORIASIS
     Dates: start: 20110501
  4. HUMIRA [Suspect]
     Dates: start: 20110620, end: 20110901

REACTIONS (3)
  - PARAESTHESIA [None]
  - SENSITIVITY OF TEETH [None]
  - TONGUE DISORDER [None]
